FAERS Safety Report 8924831 (Version 1)
Quarter: 2012Q4

REPORT INFORMATION
  Report Type: 
  Country: US (occurrence: US)
  Receive Date: 20121126
  Receipt Date: 20121126
  Transmission Date: 20130627
  Serious: Yes (Other)
  Sender: FDA-Public Use
  Company Number: US-PFIZER INC-2012295007

PATIENT
  Age: 77 Year
  Sex: Male
  Weight: 92.97 kg

DRUGS (1)
  1. LIPITOR [Suspect]
     Indication: HIGH CHOLESTEROL
     Dosage: UNK

REACTIONS (2)
  - Prostate cancer [Unknown]
  - Bladder pain [Unknown]
